FAERS Safety Report 12511168 (Version 1)
Quarter: 2016Q2

REPORT INFORMATION
  Report Type: Report from Study
  Country: CA (occurrence: CA)
  Receive Date: 20160629
  Receipt Date: 20160629
  Transmission Date: 20160815
  Serious: Yes (Other)
  Sender: FDA-Public Use
  Company Number: CA-HLSUS-2016-CA-000239

PATIENT
  Age: 76 Year
  Sex: 0

DRUGS (1)
  1. CLOZARIL [Suspect]
     Active Substance: CLOZAPINE
     Dosage: SINGLE DOSE
     Route: 048
     Dates: start: 20160622, end: 20160622

REACTIONS (4)
  - Blood pressure systolic increased [Unknown]
  - Drug administration error [Recovered/Resolved]
  - Sinus tachycardia [Unknown]
  - Somnolence [Unknown]

NARRATIVE: CASE EVENT DATE: 20160622
